FAERS Safety Report 4881758-4 (Version None)
Quarter: 2006Q1

REPORT INFORMATION
  Report Type: 
  Country: None (occurrence: None)
  Receive Date: 20060116
  Receipt Date: 20060111
  Transmission Date: 20060701
  Serious: Yes (Hospitalization)
  Sender: FDA-Public Use
  Company Number: PHRM2006FR00494

PATIENT
  Age: 57 Year
  Sex: Male

DRUGS (3)
  1. NEORAL [Suspect]
     Indication: CHORIORETINOPATHY
     Dosage: 125 MG, BID
     Route: 048
     Dates: start: 20011211
  2. FOSAMAX ONCE WEEKLY [Concomitant]
     Dosage: 1 DF, QW
     Route: 048
     Dates: start: 20040107
  3. CORTANCYL [Concomitant]
     Indication: CHORIORETINOPATHY
     Dosage: 20 MG, QD
     Route: 048

REACTIONS (2)
  - DEEP VEIN THROMBOSIS [None]
  - PULMONARY EMBOLISM [None]
